FAERS Safety Report 7805050-0 (Version None)
Quarter: 2011Q4

REPORT INFORMATION
  Report Type: 
  Country: None (occurrence: None)
  Receive Date: 20111010
  Receipt Date: 20110707
  Transmission Date: 20120403
  Serious: Yes (Other)
  Sender: FDA-Public Use
  Company Number: FR-GLAXOSMITHKLINE-B0731773A

PATIENT
  Age: 64 Year
  Sex: Male

DRUGS (1)
  1. REQUIP [Suspect]
     Indication: PARKINSON'S DISEASE
     Route: 048
     Dates: start: 20091201, end: 20110701

REACTIONS (3)
  - PERSECUTORY DELUSION [None]
  - DELUSION [None]
  - LIBIDO INCREASED [None]
